FAERS Safety Report 9153697 (Version 1)
Quarter: 2013Q1

REPORT INFORMATION
  Report Type: Spontaneous
  Country: US (occurrence: None)
  Receive Date: 20130305
  Receipt Date: 20130305
  Transmission Date: 20140127
  Serious: Yes (Hospitalization)
  Sender: FDA-Public Use
  Company Number: None

PATIENT
  Sex: Male
  Weight: 107.96 kg

DRUGS (1)
  1. TERAZOSIN [Suspect]
     Indication: URINE FLOW DECREASED
     Dosage: 1 CAPSULE AT BEDTIME MOUTH
     Dates: start: 20110228

REACTIONS (1)
  - Dyspnoea [None]
